FAERS Safety Report 8243101-2 (Version None)
Quarter: 2012Q1

REPORT INFORMATION
  Report Type: 
  Country: None (occurrence: None)
  Receive Date: 20120329
  Receipt Date: 20110902
  Transmission Date: 20120608
  Serious: No
  Sender: FDA-Public Use
  Company Number: US-MYLANLABS-2011S1018359

PATIENT
  Age: 73 Year
  Sex: Male
  Weight: 96.16 kg

DRUGS (11)
  1. FELODIPINE [Concomitant]
     Indication: BLOOD PRESSURE INCREASED
  2. METOPROLOL SUCCINATE [Concomitant]
     Indication: BLOOD PRESSURE INCREASED
  3. AMLODIPINE [Concomitant]
     Indication: BLOOD PRESSURE INCREASED
  4. PROAIR HFA [Concomitant]
     Indication: ASTHMA
     Dosage: 2 PUFFS
     Route: 055
  5. LASIX [Concomitant]
     Indication: BLOOD PRESSURE INCREASED
  6. ALLOPURINOL [Concomitant]
     Indication: GOUT
  7. ALBUTEROL SULATE [Suspect]
     Indication: CHRONIC OBSTRUCTIVE PULMONARY DISEASE
     Route: 055
  8. ADVAIR DISKUS 100/50 [Concomitant]
     Indication: ASTHMA
     Dosage: 50/250
  9. PREDNISONE TAB [Concomitant]
     Indication: OEDEMA
  10. SIMVASTATIN [Concomitant]
     Indication: BLOOD CHOLESTEROL INCREASED
  11. ASPIRIN [Concomitant]

REACTIONS (1)
  - DRUG INEFFECTIVE [None]
